FAERS Safety Report 4832288-7 (Version None)
Quarter: 2005Q4

REPORT INFORMATION
  Report Type: 
  Country: None (occurrence: None)
  Receive Date: 20051116
  Receipt Date: 20051116
  Transmission Date: 20060501
  Serious: Yes (Other)
  Sender: FDA-Public Use
  Company Number: None

PATIENT
  Age: 34 Year
  Sex: Female
  Weight: 58.9676 kg

DRUGS (2)
  1. SEROQUEL [Suspect]
     Indication: DRUG DEPENDENCE
     Dosage: 400 MG PO Q HS
     Route: 048
     Dates: start: 20050927, end: 20051027
  2. SEROQUEL [Suspect]
     Indication: MAJOR DEPRESSION
     Dosage: 400 MG PO Q HS
     Route: 048
     Dates: start: 20050927, end: 20051027

REACTIONS (1)
  - TINNITUS [None]
